FAERS Safety Report 8124203-8 (Version None)
Quarter: 2012Q1

REPORT INFORMATION
  Report Type: 
  Country: None (occurrence: None)
  Receive Date: 20120209
  Receipt Date: 20120202
  Transmission Date: 20120608
  Serious: Yes (Death, Hospitalization, Other)
  Sender: FDA-Public Use
  Company Number: US-BRISTOL-MYERS SQUIBB COMPANY-16209785

PATIENT
  Age: 63 Year
  Sex: Female

DRUGS (2)
  1. DEPOCYT [Suspect]
     Indication: ACUTE MYELOID LEUKAEMIA
     Dosage: 6SEP11,20SEP11
     Dates: start: 20110823, end: 20110920
  2. SPRYCEL [Suspect]
     Indication: CHRONIC MYELOID LEUKAEMIA
     Dosage: STOPPD ON 6SEP10 AND RESTARTD ON OCT2011-DEATH(13 MONTH)
     Route: 048
     Dates: start: 20100605

REACTIONS (6)
  - VOMITING [None]
  - HEPATIC ENZYME INCREASED [None]
  - NEOPLASM MALIGNANT [None]
  - NAUSEA [None]
  - DIARRHOEA [None]
  - DEATH [None]
